FAERS Safety Report 18122803 (Version 1)
Quarter: 2020Q3

REPORT INFORMATION
  Report Type: Spontaneous
  Country: US (occurrence: US)
  Receive Date: 20200806
  Receipt Date: 20200806
  Transmission Date: 20201103
  Serious: Yes (Other)
  Sender: FDA-Public Use
  Company Number: None

PATIENT
  Age: 67 Year
  Sex: Female
  Weight: 52.65 kg

DRUGS (9)
  1. MAGNESIUM [Concomitant]
     Active Substance: MAGNESIUM
  2. B VITAMINS [Concomitant]
     Active Substance: CYANOCOBALAMIN\DEXPANTHENOL\NIACINAMIDE\PYRIDOXINE HYDROCHLORIDE\RIBOFLAVIN 5^-PHOSPHATE SODIUM\THIAMINE HYDROCHLORIDE\VITAMIN B COMPLEX
  3. ZINC. [Concomitant]
     Active Substance: ZINC
  4. MULTIVITAMINS [Concomitant]
     Active Substance: VITAMINS
  5. COENZYME Q10 [Concomitant]
     Active Substance: DIETARY SUPPLEMENT\UBIDECARENONE
  6. VITAMIN D3 [Concomitant]
     Active Substance: CHOLECALCIFEROL
  7. DOXYCYCLINE HYCLATE. [Suspect]
     Active Substance: DOXYCYCLINE HYCLATE
     Indication: SKIN INFECTION
     Dosage: ?          QUANTITY:1 CAPSULE(S);?
     Route: 048
     Dates: start: 20200724, end: 20200801
  8. SALMON OIL W/TOCOPHEROL [Concomitant]
     Active Substance: FISH OIL\TOCOPHEROL
  9. D?RIBOSE [Concomitant]
     Active Substance: DIETARY SUPPLEMENT

REACTIONS (17)
  - Nausea [None]
  - Pain [None]
  - Parosmia [None]
  - Taste disorder [None]
  - Muscle spasms [None]
  - Feeling abnormal [None]
  - Pain in extremity [None]
  - Diarrhoea [None]
  - Arthralgia [None]
  - Disturbance in attention [None]
  - Vomiting [None]
  - Asthenia [None]
  - Headache [None]
  - Thirst [None]
  - Pyrexia [None]
  - Fatigue [None]
  - Constipation [None]

NARRATIVE: CASE EVENT DATE: 20200724
